FAERS Safety Report 24696301 (Version 1)
Quarter: 2024Q4

REPORT INFORMATION
  Report Type: Spontaneous
  Country: US (occurrence: US)
  Receive Date: 20241204
  Receipt Date: 20241204
  Transmission Date: 20250115
  Serious: Yes (Hospitalization)
  Sender: GLAND PHARMA LTD
  Company Number: US-GLANDPHARMA-US-2024GLNSPO01104

PATIENT
  Sex: Female

DRUGS (1)
  1. DOXORUBICIN HYDROCHLORIDE [Suspect]
     Active Substance: DOXORUBICIN HYDROCHLORIDE
     Indication: Chemotherapy
     Route: 042

REACTIONS (7)
  - Rhinovirus infection [Unknown]
  - Enterovirus infection [Unknown]
  - Pain [Unknown]
  - Fatigue [Unknown]
  - Pyrexia [Unknown]
  - Asthenia [Unknown]
  - Neutrophil count decreased [Unknown]
